FAERS Safety Report 11651679 (Version 1)
Quarter: 2015Q4

REPORT INFORMATION
  Report Type: Spontaneous
  Country: US (occurrence: None)
  Receive Date: 20151021
  Receipt Date: 20151021
  Transmission Date: 20160304
  Serious: Yes (Other)
  Sender: FDA-Public Use
  Company Number: None

PATIENT
  Age: 42 Year
  Sex: Female
  Weight: 111.13 kg

DRUGS (5)
  1. VEGETARIAN CAPSULES [Concomitant]
  2. MIRVASO [Suspect]
     Active Substance: BRIMONIDINE TARTRATE
     Indication: ROSACEA
     Dosage: PEA SIZE AMOUNT ONCE DAILY
     Route: 061
     Dates: start: 20151010, end: 20151018
  3. PHENTERMINE. [Concomitant]
     Active Substance: PHENTERMINE
  4. MIRVASO [Concomitant]
     Active Substance: BRIMONIDINE TARTRATE
  5. WEBBER NATURALS COMPLETE PROBIOTIC [Concomitant]

REACTIONS (2)
  - Application site pain [None]
  - Application site erythema [None]

NARRATIVE: CASE EVENT DATE: 20151010
